FAERS Safety Report 22067790 (Version 1)
Quarter: 2023Q1

REPORT INFORMATION
  Report Type: Spontaneous
  Country: US (occurrence: US)
  Receive Date: 20230307
  Receipt Date: 20230307
  Transmission Date: 20230417
  Serious: Yes (Other)
  Sender: FDA-Public Use
  Company Number: US-NOVOPROD-1031585

PATIENT
  Age: 63 Year
  Sex: Female

DRUGS (1)
  1. WEGOVY [Suspect]
     Active Substance: SEMAGLUTIDE
     Indication: Overweight
     Dosage: UNK
     Route: 058
     Dates: start: 202205

REACTIONS (5)
  - Spinal operation [Unknown]
  - Knee arthroplasty [Unknown]
  - Hip arthroplasty [Unknown]
  - Arthritis [Unknown]
  - Decreased activity [Unknown]

NARRATIVE: CASE EVENT DATE: 20230228
